FAERS Safety Report 9459145 (Version 2)
Quarter: 2013Q3

REPORT INFORMATION
  Report Type: Spontaneous
  Country: US (occurrence: US)
  Receive Date: 20130814
  Receipt Date: 20130904
  Transmission Date: 20140515
  Serious: Yes (Life-Threatening)
  Sender: FDA-Public Use
  Company Number: US-JHP PHARMACEUTICALS, LLC-JHP201300506

PATIENT
  Age: 50 Year
  Sex: Male

DRUGS (13)
  1. ADRENALIN [Suspect]
     Indication: BLOOD PRESSURE DECREASED
     Dosage: 300 ?G, BOLUS
     Route: 040
  2. ADRENALIN [Suspect]
     Indication: ANAPHYLACTIC REACTION
     Dosage: ADDITIONAL IV BOLUSES
     Route: 040
  3. ADRENALIN [Suspect]
     Dosage: 1 MG IV BOLUSES - 3.5 MG TOTAL
     Route: 040
  4. PHENYLEPHRINE [Suspect]
     Indication: BLOOD PRESSURE DECREASED
     Dosage: 500 MCG TOTAL
     Route: 042
  5. EPHEDRINE [Suspect]
     Indication: BLOOD PRESSURE DECREASED
     Dosage: 20 MG TOTAL
     Route: 042
  6. FENTANYL [Concomitant]
     Indication: ANAESTHESIA PROCEDURE
     Dosage: 200 ?G, UNK
     Route: 042
  7. PROPOFOL [Concomitant]
     Indication: ANAESTHESIA PROCEDURE
     Dosage: 200 MG, UNK
  8. ROCURONIUM [Concomitant]
     Dosage: 50 MG, UNK
  9. DESFLURANE [Concomitant]
     Indication: MAINTENANCE OF ANAESTHESIA
     Dosage: 4.5% - 6.0%
  10. CEFAZOLIN [Concomitant]
     Indication: ANTIBIOTIC PROPHYLAXIS
     Dosage: 2 G, UNK
     Route: 042
  11. HYDROCORTISONE [Concomitant]
     Dosage: 300 MG, UNK
     Route: 042
  12. DIPHENHYDRAMINE [Concomitant]
     Dosage: 50 MG, UNK
     Route: 042
  13. FAMOTIDINE [Concomitant]
     Dosage: 20 MG, UNK
     Route: 042

REACTIONS (2)
  - Drug ineffective [Recovered/Resolved]
  - Hypotension [Recovered/Resolved]
